FAERS Safety Report 15014876 (Version 2)
Quarter: 2020Q1

REPORT INFORMATION
  Report Type: Spontaneous
  Country: GB (occurrence: GB)
  Receive Date: 20180615
  Receipt Date: 20200104
  Transmission Date: 20200409
  Serious: Yes (Other)
  Sender: FDA-Public Use
  Company Number: GB-AUROBINDO-AUR-APL-2018-031226

PATIENT
  Age: 41 Year
  Sex: Female

DRUGS (3)
  1. ABACAVIR+LAMIVUDINE FILM COATED TABLET [Suspect]
     Active Substance: ABACAVIR\LAMIVUDINE
     Indication: ANTIVIRAL TREATMENT
     Dosage: 1 DOSAGE FORM, ONCE A DAY (DAILY)
     Route: 048
     Dates: start: 20170601
  2. EDURANT [Suspect]
     Active Substance: RILPIVIRINE HYDROCHLORIDE
     Indication: HIV INFECTION
     Dosage: 25 MILLIGRAM, ONCE A DAY (DAILY)
     Route: 048
     Dates: start: 20170601
  3. ABACAVIR+LAMIVUDINE FILM COATED TABLET [Suspect]
     Active Substance: ABACAVIR\LAMIVUDINE
     Indication: HIV INFECTION

REACTIONS (2)
  - Maternal exposure during pregnancy [Unknown]
  - Pyelocaliectasis [Unknown]

NARRATIVE: CASE EVENT DATE: 20180504
